FAERS Safety Report 7131551-7 (Version None)
Quarter: 2010Q4

REPORT INFORMATION
  Report Type: 
  Country: None (occurrence: None)
  Receive Date: 20101201
  Receipt Date: 20101125
  Transmission Date: 20110411
  Serious: Yes (Other)
  Sender: FDA-Public Use
  Company Number: FR-ABBOTT-10P-056-0667890-00

PATIENT
  Sex: Male

DRUGS (2)
  1. HUMIRA [Suspect]
     Indication: PSORIASIS
     Route: 058
     Dates: start: 20100315
  2. SORIATANE [Suspect]
     Indication: PSORIASIS
     Route: 048
     Dates: start: 20090501, end: 20100501

REACTIONS (1)
  - CYTOLYTIC HEPATITIS [None]
